FAERS Safety Report 13748774 (Version 3)
Quarter: 2018Q1

REPORT INFORMATION
  Report Type: Report from Study
  Country: JP (occurrence: JP)
  Receive Date: 20170713
  Receipt Date: 20180102
  Transmission Date: 20180508
  Serious: Yes (Other)
  Sender: FDA-Public Use
  Company Number: JP-VIFOR (INTERNATIONAL) INC.-VIT-2017-06967

PATIENT
  Age: 73 Year
  Sex: Male
  Weight: 78.8 kg

DRUGS (21)
  1. ROCALTROL [Concomitant]
     Active Substance: CALCITRIOL
     Dates: end: 20160906
  2. ROCALTROL [Concomitant]
     Active Substance: CALCITRIOL
     Dates: start: 20170422
  3. AMITIZA [Concomitant]
     Active Substance: LUBIPROSTONE
     Route: 048
     Dates: start: 20161101, end: 20161220
  4. AMITIZA [Concomitant]
     Active Substance: LUBIPROSTONE
     Route: 048
     Dates: start: 20170408, end: 20170422
  5. FEBURIC [Concomitant]
     Active Substance: FEBUXOSTAT
     Route: 048
  6. BAYASPIRIN [Concomitant]
     Active Substance: ASPIRIN
     Route: 048
  7. CALTAN-OD [Concomitant]
     Indication: HYPERPHOSPHATAEMIA
     Route: 048
     Dates: end: 20170406
  8. FRANDOL [Concomitant]
     Active Substance: ISOSORBIDE DINITRATE
     Dosage: 1 SHEET
     Route: 050
  9. ROCALTROL [Concomitant]
     Active Substance: CALCITRIOL
     Dates: start: 20160908, end: 20170211
  10. GLYCEOL [Concomitant]
     Active Substance: GLYCERIN
  11. SARPOGRELATE HYDROCHLORIDE [Concomitant]
     Active Substance: SARPOGRELATE HYDROCHLORIDE
     Route: 048
  12. SENNOSIDE A+B CALCIUM [Concomitant]
     Active Substance: SENNOSIDES A AND B
     Route: 048
     Dates: start: 20161101, end: 20161220
  13. AMITIZA [Concomitant]
     Active Substance: LUBIPROSTONE
     Route: 048
     Dates: start: 20160924, end: 20161007
  14. SENNOSIDE A+B CALCIUM [Concomitant]
     Active Substance: SENNOSIDES A AND B
     Route: 048
     Dates: start: 20170406
  15. ROCALTROL [Concomitant]
     Active Substance: CALCITRIOL
     Dates: start: 20170214, end: 20170420
  16. CALTAN-OD [Concomitant]
     Route: 048
     Dates: start: 20170406
  17. EFFORTIL [Concomitant]
     Active Substance: ETILEFRINE HYDROCHLORIDE
  18. VELPHORO [Suspect]
     Active Substance: FERRIC OXYHYDROXIDE
     Indication: HYPERPHOSPHATAEMIA
     Route: 048
     Dates: start: 20160602
  19. KAYEXALATE [Concomitant]
     Active Substance: SODIUM POLYSTYRENE SULFONATE
     Route: 048
  20. CILOSTAZOL. [Concomitant]
     Active Substance: CILOSTAZOL
     Route: 048
     Dates: end: 20161220
  21. DOPS [Concomitant]
     Active Substance: DROXIDOPA
     Route: 048

REACTIONS (4)
  - Cellulitis [Recovered/Resolved]
  - Bronchitis [Recovered/Resolved]
  - Diarrhoea [Recovered/Resolved]
  - Infection [Recovered/Resolved]

NARRATIVE: CASE EVENT DATE: 20170117
